FAERS Safety Report 18618731 (Version 1)
Quarter: 2020Q4

REPORT INFORMATION
  Report Type: Spontaneous
  Country: CN (occurrence: CN)
  Receive Date: 20201215
  Receipt Date: 20201215
  Transmission Date: 20210114
  Serious: Yes (Other)
  Sender: FDA-Public Use
  Company Number: CN-LUPIN PHARMACEUTICALS INC.-2020-10121

PATIENT
  Age: 33 Month
  Sex: Male

DRUGS (3)
  1. TOPIRAMAT [Suspect]
     Active Substance: TOPIRAMATE
     Indication: ATYPICAL BENIGN PARTIAL EPILEPSY
     Dosage: UNK
     Route: 065
  2. LEVETIRACETAM. [Suspect]
     Active Substance: LEVETIRACETAM
     Indication: ATYPICAL BENIGN PARTIAL EPILEPSY
     Dosage: UNK
     Route: 065
  3. VALPROATE SODIUM. [Suspect]
     Active Substance: VALPROATE SODIUM
     Indication: ATYPICAL BENIGN PARTIAL EPILEPSY
     Dosage: UNK
     Route: 065

REACTIONS (1)
  - Drug ineffective [Unknown]
